FAERS Safety Report 8621527 (Version 4)
Quarter: 2013Q2

REPORT INFORMATION
  Report Type: Report from Study
  Country: CA (occurrence: CA)
  Receive Date: 20120619
  Receipt Date: 20130419
  Transmission Date: 20140414
  Serious: Yes (Other)
  Sender: FDA-Public Use
  Company Number: CA-UCBSA-059498

PATIENT
  Age: 56 Year
  Sex: Female
  Weight: 78 kg

DRUGS (12)
  1. CERTOLIZUMAB PEGOL [Suspect]
     Indication: RHEUMATOID ARTHRITIS
     Dosage: NO OF DOSES RECEIVED: 3; DOSE: 400MG
     Route: 058
     Dates: start: 20110926, end: 20111025
  2. CERTOLIZUMAB PEGOL [Suspect]
     Indication: RHEUMATOID ARTHRITIS
     Dosage: DOSE: 200 MG; NO OF DOSES RECEIVED: 15
     Route: 058
     Dates: start: 20111107, end: 20120529
  3. METHOTREXATE [Concomitant]
     Indication: RHEUMATOID ARTHRITIS
     Dosage: DOSE: 20 MG QS
     Route: 048
     Dates: start: 20101216, end: 20120629
  4. METHOTREXATE [Concomitant]
     Indication: RHEUMATOID ARTHRITIS
     Dosage: DOSE: 20 MG, QS
     Dates: start: 20120716, end: 20120829
  5. FOLIC ACID [Concomitant]
     Indication: PROPHYLAXIS
     Dosage: DOSE: 5 MG QS
     Route: 048
     Dates: start: 20101217, end: 20120630
  6. FOLIC ACID [Concomitant]
     Indication: PROPHYLAXIS
     Dosage: DOSE: 5 MG QS
     Dates: start: 20120717, end: 20120830
  7. NOVOLISINOPRIL [Concomitant]
     Indication: HYPERTENSION
     Dosage: 1 TAB ONCE DAILY
     Route: 048
     Dates: start: 2004
  8. NORVASC [Concomitant]
     Indication: HYPERTENSION
     Route: 048
     Dates: start: 2004
  9. PANTOLOC [Concomitant]
     Indication: DYSPEPSIA
     Route: 048
     Dates: start: 20110517
  10. CALTRATE - D [Concomitant]
     Indication: OSTEOPOROSIS PROPHYLAXIS
     Dosage: 1 TAB TWICE DAILY
     Route: 048
     Dates: start: 20110517
  11. MAALOX EXTRA-STRENGTH [Concomitant]
     Indication: DYSPEPSIA
     Dates: start: 20111019
  12. VOLTAREN GEL [Concomitant]
     Indication: MUSCULOSKELETAL PAIN
     Dosage: 1 APP. PRN
     Dates: start: 20120104

REACTIONS (1)
  - Invasive ductal breast carcinoma [Not Recovered/Not Resolved]
